FAERS Safety Report 4795719-7 (Version None)
Quarter: 2005Q4

REPORT INFORMATION
  Report Type: 
  Country: None (occurrence: None)
  Receive Date: 20051012
  Receipt Date: 20050908
  Transmission Date: 20060501
  Serious: Yes (Death, Other)
  Sender: FDA-Public Use
  Company Number: JP-BRISTOL-MYERS SQUIBB COMPANY-13104799

PATIENT
  Age: 55 Year
  Sex: Male

DRUGS (11)
  1. TAXOL [Suspect]
     Indication: GASTRIC CANCER
     Route: 041
     Dates: start: 20050809, end: 20050809
  2. GASTER [Suspect]
     Indication: PREMEDICATION
     Route: 041
     Dates: start: 20050726, end: 20050809
  3. MOBIC [Suspect]
     Indication: ABDOMINAL PAIN
     Route: 048
     Dates: start: 20050726, end: 20050814
  4. ORGADRONE [Concomitant]
     Route: 042
     Dates: start: 20050726, end: 20050809
  5. GASTER D [Concomitant]
     Route: 048
     Dates: start: 20041221, end: 20050814
  6. FERROMIA [Concomitant]
     Route: 048
     Dates: start: 20041221, end: 20050814
  7. LOXONIN [Concomitant]
     Route: 048
     Dates: start: 20050728, end: 20050814
  8. PANTOSIN [Concomitant]
     Route: 048
     Dates: start: 20050728, end: 20050811
  9. MAGNESIUM OXIDE [Concomitant]
     Route: 048
     Dates: start: 20050728, end: 20050811
  10. SENNOSIDE [Concomitant]
     Route: 048
     Dates: start: 20050728, end: 20050811
  11. VENA [Concomitant]
     Route: 048
     Dates: start: 20050726, end: 20050809

REACTIONS (4)
  - DISSEMINATED INTRAVASCULAR COAGULATION [None]
  - LEUKOPENIA [None]
  - MALIGNANT NEOPLASM PROGRESSION [None]
  - SEPSIS [None]
